FAERS Safety Report 8895732 (Version 8)
Quarter: 2014Q2

REPORT INFORMATION
  Report Type: Spontaneous
  Country: US (occurrence: US)
  Receive Date: 20121108
  Receipt Date: 20140417
  Transmission Date: 20141212
  Serious: Yes (Hospitalization, Other)
  Sender: FDA-Public Use
  Company Number: US-009507513-1211USA002244

PATIENT
  Sex: Female
  Weight: 73.92 kg

DRUGS (8)
  1. FOSAMAX [Suspect]
     Indication: OSTEOPOROSIS
     Dosage: 10 MG, QD
     Route: 048
     Dates: start: 199806, end: 201012
  2. FOSAMAX [Suspect]
     Dosage: 70 MG, QW
     Route: 048
     Dates: end: 201012
  3. FOSAMAX [Suspect]
     Indication: OSTEOPOROSIS
     Dosage: UNK
     Route: 048
  4. ALENDRONATE SODIUM [Suspect]
     Indication: OSTEOPOROSIS
     Dosage: 70 MG, QW
     Route: 048
  5. CALCIUM (UNSPECIFIED) [Concomitant]
     Dosage: 2 TABS
     Dates: start: 1992
  6. VITAMIN D (UNSPECIFIED) [Concomitant]
     Dosage: 1 QD
     Dates: start: 1992
  7. EVISTA [Concomitant]
     Indication: OSTEOPOROSIS
     Dosage: 60 MG, QD
  8. DIGESTIVE ADVANTAGE IRRITABLE BOWEL SYNDROME [Concomitant]
     Indication: IRRITABLE BOWEL SYNDROME

REACTIONS (26)
  - Plasma cell myeloma [Unknown]
  - Hernia repair [Unknown]
  - Laparotomy [Unknown]
  - Surgery [Unknown]
  - Lumbar spinal stenosis [Unknown]
  - Spinal fusion surgery [Unknown]
  - Femur fracture [Unknown]
  - Femur fracture [Unknown]
  - Low turnover osteopathy [Unknown]
  - Adverse event [Unknown]
  - Intervertebral disc degeneration [Unknown]
  - Gastritis erosive [Unknown]
  - Anaemia [Unknown]
  - Small intestinal obstruction [Unknown]
  - Female sterilisation [Unknown]
  - Hiatus hernia [Unknown]
  - Gastrointestinal motility disorder [Unknown]
  - Device failure [Unknown]
  - Scoliosis [Unknown]
  - Haemorrhagic anaemia [Unknown]
  - Blood disorder [Unknown]
  - Pain in extremity [Unknown]
  - Gastrooesophageal reflux disease [Unknown]
  - Arthralgia [Unknown]
  - Pain in extremity [Unknown]
  - Back pain [Unknown]
